FAERS Safety Report 9210623 (Version 1)
Quarter: 2013Q2

REPORT INFORMATION
  Report Type: Spontaneous
  Country: US (occurrence: US)
  Receive Date: 20130404
  Receipt Date: 20130404
  Transmission Date: 20140414
  Serious: No
  Sender: FDA-Public Use
  Company Number: US-ASTRAZENECA-2013SE19337

PATIENT
  Age: 54 Year
  Sex: Female
  Weight: 84.4 kg

DRUGS (11)
  1. SEROQUEL [Suspect]
     Indication: SLEEP DISORDER
     Dosage: GENERIC
     Route: 048
     Dates: start: 201202
  2. SEROQUEL [Suspect]
     Indication: SLEEP DISORDER
     Route: 048
  3. SEROQUEL [Suspect]
     Indication: SLEEP DISORDER
     Route: 048
     Dates: end: 201210
  4. COLAZAPAM [Concomitant]
     Indication: SLEEP DISORDER
  5. PANTOPRAZOL [Concomitant]
     Indication: OESOPHAGEAL DISORDER
  6. LABETALOL [Concomitant]
  7. THIAMINE [Concomitant]
  8. METFORMAN [Concomitant]
     Indication: DIABETES MELLITUS
  9. CLONIDINE [Concomitant]
     Indication: BLOOD PRESSURE ABNORMAL
  10. FOLIC ACID [Concomitant]
  11. AMLODIPINE [Concomitant]

REACTIONS (17)
  - Diabetes mellitus [Unknown]
  - Weight decreased [Unknown]
  - Blood triglycerides abnormal [Unknown]
  - Rash pustular [Unknown]
  - Pruritus [Unknown]
  - Purulent discharge [Unknown]
  - Scar [Unknown]
  - Tooth disorder [Unknown]
  - Local swelling [Unknown]
  - Adverse event [Unknown]
  - Mucosal inflammation [Unknown]
  - Cardiac disorder [Unknown]
  - Insomnia [Unknown]
  - Weight increased [Unknown]
  - Muscle twitching [Unknown]
  - Therapeutic response unexpected [Unknown]
  - Intentional drug misuse [Unknown]
